FAERS Safety Report 11461904 (Version 1)
Quarter: 2015Q3

REPORT INFORMATION
  Report Type: Spontaneous
  Country: US (occurrence: US)
  Receive Date: 20150831
  Receipt Date: 20150831
  Transmission Date: 20151125
  Serious: No
  Sender: FDA-Public Use
  Company Number: US-ELI_LILLY_AND_COMPANY-US201009001735

PATIENT
  Age: 23 Year
  Sex: Female

DRUGS (2)
  1. CYMBALTA [Suspect]
     Active Substance: DULOXETINE HYDROCHLORIDE
     Indication: DEPRESSION
     Dosage: 60 MG, UNK
  2. CYMBALTA [Suspect]
     Active Substance: DULOXETINE HYDROCHLORIDE
     Dosage: 60 MG, UNK

REACTIONS (9)
  - Fatigue [Unknown]
  - Drug withdrawal syndrome [Unknown]
  - Feeling abnormal [Not Recovered/Not Resolved]
  - Head titubation [Unknown]
  - Disorientation [Unknown]
  - Myalgia [Not Recovered/Not Resolved]
  - Tremor [Unknown]
  - Nausea [Unknown]
  - Dizziness [Unknown]
